FAERS Safety Report 22818656 (Version 5)
Quarter: 2023Q4

REPORT INFORMATION
  Report Type: Report from Study
  Country: CA (occurrence: CA)
  Receive Date: 20230814
  Receipt Date: 20231208
  Transmission Date: 20240110
  Serious: Yes (Other)
  Sender: FDA-Public Use
  Company Number: CA-TAKEDA-2020TUS022378

PATIENT
  Age: 59 Year
  Sex: Male

DRUGS (10)
  1. VEDOLIZUMAB [Suspect]
     Active Substance: VEDOLIZUMAB
     Indication: Colitis ulcerative
     Dosage: 300 MILLIGRAM
     Route: 042
     Dates: start: 20200326
  2. VEDOLIZUMAB [Suspect]
     Active Substance: VEDOLIZUMAB
     Dosage: 300 MILLIGRAM, Q4WEEKS
     Route: 042
     Dates: start: 20200513
  3. VEDOLIZUMAB [Suspect]
     Active Substance: VEDOLIZUMAB
     Dosage: 300 MILLIGRAM, Q4WEEKS
     Route: 042
  4. VEDOLIZUMAB [Suspect]
     Active Substance: VEDOLIZUMAB
     Indication: Colitis ulcerative
     Dosage: 108 MILLIGRAM, Q2WEEKS
     Route: 058
     Dates: start: 20230809
  5. Cortiment [Concomitant]
     Dosage: UNK
     Dates: start: 20200213
  6. BACTRIM [Concomitant]
     Active Substance: SULFAMETHOXAZOLE\TRIMETHOPRIM
     Indication: Prophylaxis
     Dosage: UNK
     Dates: start: 20200226
  7. PREDNISONE [Concomitant]
     Active Substance: PREDNISONE
     Dosage: UNK
  8. CALCIUM\VITAMIN D [Concomitant]
     Active Substance: CALCIUM\VITAMIN D
     Dosage: UNK
  9. ROSUVASTATIN [Concomitant]
     Active Substance: ROSUVASTATIN
     Dosage: UNK
  10. AMLODIPINE [Concomitant]
     Active Substance: AMLODIPINE BESYLATE
     Dosage: 2.5 MILLIGRAM
     Dates: start: 20220310

REACTIONS (7)
  - Colitis ulcerative [Recovering/Resolving]
  - Haematochezia [Recovering/Resolving]
  - Proctitis [Unknown]
  - Drug ineffective [Not Recovered/Not Resolved]
  - Off label use [Unknown]
  - Product dose omission issue [Unknown]
  - Diarrhoea [Recovering/Resolving]

NARRATIVE: CASE EVENT DATE: 20200513
